FAERS Safety Report 7447913-4 (Version None)
Quarter: 2011Q2

REPORT INFORMATION
  Report Type: 
  Country: None (occurrence: None)
  Receive Date: 20110429
  Receipt Date: 20100719
  Transmission Date: 20111010
  Serious: No
  Sender: FDA-Public Use
  Company Number: US-ASTRAZENECA-2010SE12033

PATIENT
  Sex: Female
  Weight: 47.6 kg

DRUGS (3)
  1. CLARITIN [Concomitant]
  2. NEXIUM [Suspect]
     Route: 048
  3. PRILOSEC [Suspect]
     Route: 048

REACTIONS (10)
  - MITRAL VALVE PROLAPSE [None]
  - WEIGHT DECREASED [None]
  - PALPITATIONS [None]
  - CHEST DISCOMFORT [None]
  - GASTROOESOPHAGEAL REFLUX DISEASE [None]
  - DYSPNOEA [None]
  - MUSCULOSKELETAL PAIN [None]
  - REGURGITATION [None]
  - MUSCLE TIGHTNESS [None]
  - PHARYNGITIS [None]
